FAERS Safety Report 8251533-1 (Version None)
Quarter: 2012Q2

REPORT INFORMATION
  Report Type: 
  Country: None (occurrence: None)
  Receive Date: 20120402
  Receipt Date: 20120323
  Transmission Date: 20120825
  Serious: Yes (Hospitalization, Other)
  Sender: FDA-Public Use
  Company Number: US-BAYER-2012-029461

PATIENT
  Age: 23 Year
  Sex: Female
  Weight: 115.8 kg

DRUGS (11)
  1. ATIVAN [Concomitant]
  2. PHENYLEPHRINE HCL [Concomitant]
     Route: 041
  3. DOPAMINE HCL [Concomitant]
     Route: 041
  4. RESTORIL [Concomitant]
  5. ZANTAC [Concomitant]
  6. ANTIBIOTICS [Concomitant]
     Route: 042
  7. TYNELOL WITH COEDINE ELIXIR [Concomitant]
     Dosage: 3 TEASPOONS Q4HR PRN
     Route: 048
     Dates: start: 20050130
  8. LEXAPRO [Concomitant]
  9. YASMIN [Suspect]
  10. CHEWABLE VITAMIN [Concomitant]
     Dosage: UNK UNK, QD
     Route: 048
     Dates: start: 20050130
  11. INSULIN [Concomitant]

REACTIONS (3)
  - PULMONARY EMBOLISM [None]
  - CHOLELITHIASIS [None]
  - DEEP VEIN THROMBOSIS [None]
